FAERS Safety Report 23799858 (Version 1)
Quarter: 2024Q2

REPORT INFORMATION
  Report Type: Other
  Country: US (occurrence: US)
  Receive Date: 20240430
  Receipt Date: 20240430
  Transmission Date: 20240716
  Serious: Yes (Life-Threatening, Hospitalization)
  Sender: FDA-Public Use
  Company Number: US-B.Braun Medical Inc.-2156301

PATIENT
  Age: 10 Year
  Sex: Male

DRUGS (2)
  1. POTASSIUM CHLORIDE [Suspect]
     Active Substance: POTASSIUM CHLORIDE
     Indication: Supplementation therapy
  2. FUROSEMIDE [Concomitant]
     Active Substance: FUROSEMIDE

REACTIONS (5)
  - Hypernatraemia [Recovering/Resolving]
  - Product administered to patient of inappropriate age [Recovering/Resolving]
  - Off label use [Recovering/Resolving]
  - Overdose [Recovering/Resolving]
  - Dehydration [Recovering/Resolving]
